FAERS Safety Report 5732649-8 (Version None)
Quarter: 2008Q2

REPORT INFORMATION
  Report Type: 
  Country: None (occurrence: None)
  Receive Date: 20080507
  Receipt Date: 20080428
  Transmission Date: 20081010
  Serious: Yes (Other)
  Sender: FDA-Public Use
  Company Number: 2008US000855

PATIENT
  Age: 56 Year
  Sex: Male

DRUGS (13)
  1. PROGRAF [Suspect]
     Indication: LIVER TRANSPLANT
     Dosage: 1 MG, BID, ORAL; 1.5 MG, BID,
     Route: 048
     Dates: end: 20080301
  2. PROGRAF [Suspect]
     Indication: LIVER TRANSPLANT
     Dosage: 1 MG, BID, ORAL; 1.5 MG, BID,
     Route: 048
     Dates: start: 20080301
  3. FLUTICASONE PROPIONATE [Concomitant]
  4. BACTRIM [Concomitant]
  5. RANITIDINE [Concomitant]
  6. NORTRIPTYLINE HCL [Concomitant]
  7. PROPRANOLOL [Concomitant]
  8. AMLODIPINE [Concomitant]
  9. AEROBID [Concomitant]
  10. LISINOPRIL [Concomitant]
  11. AVINZA [Concomitant]
  12. RITALIN [Concomitant]
  13. NOVOLOG [Concomitant]

REACTIONS (4)
  - DIABETES MELLITUS [None]
  - RENAL CANCER [None]
  - RENAL FAILURE [None]
  - WEIGHT DECREASED [None]
